FAERS Safety Report 8447334-1 (Version None)
Quarter: 2012Q2

REPORT INFORMATION
  Report Type: 
  Country: None (occurrence: None)
  Receive Date: 20120619
  Receipt Date: 20120615
  Transmission Date: 20120825
  Serious: Yes (Other)
  Sender: FDA-Public Use
  Company Number: PHHY2012DE025022

PATIENT
  Sex: Male

DRUGS (1)
  1. DIOVAN HCT [Suspect]
     Indication: HYPERTENSION
     Dosage: 1 DF, (80 MG VAL/12.5 MG HCT)
     Route: 048
     Dates: start: 20100101

REACTIONS (2)
  - HYPOGLOSSAL NERVE PARESIS [None]
  - INTERVERTEBRAL DISC PROTRUSION [None]
